FAERS Safety Report 15674969 (Version 5)
Quarter: 2019Q2

REPORT INFORMATION
  Report Type: Spontaneous
  Country: US (occurrence: US)
  Receive Date: 20181130
  Receipt Date: 20190401
  Transmission Date: 20190711
  Serious: Yes (Other)
  Sender: FDA-Public Use
  Company Number: US-BRISTOL-MYERS SQUIBB COMPANY-BMS-2018-113047

PATIENT
  Sex: Female
  Weight: 97.97 kg

DRUGS (1)
  1. ORENCIA [Suspect]
     Active Substance: ABATACEPT
     Indication: RHEUMATOID ARTHRITIS
     Dosage: 125 MG, QWK
     Route: 058
     Dates: start: 201809

REACTIONS (6)
  - Diarrhoea [Unknown]
  - Flatulence [Unknown]
  - Malaise [Unknown]
  - Arthropathy [Unknown]
  - Cough [Unknown]
  - Influenza like illness [Unknown]
